FAERS Safety Report 10223922 (Version 1)
Quarter: 2014Q2

REPORT INFORMATION
  Report Type: Report from Study
  Country: BR (occurrence: BR)
  Receive Date: 20140609
  Receipt Date: 20140609
  Transmission Date: 20141212
  Serious: Yes (Hospitalization, Other)
  Sender: FDA-Public Use
  Company Number: BR-SA-2014SA071362

PATIENT
  Sex: Male

DRUGS (1)
  1. MYOZYME [Suspect]
     Indication: GLYCOGEN STORAGE DISEASE TYPE II
     Route: 042
     Dates: start: 20131201

REACTIONS (5)
  - Cerebrovascular accident [Recovered/Resolved]
  - Cardiomegaly [Recovered/Resolved]
  - Cardiac arrest [Recovered/Resolved]
  - Pyrexia [Unknown]
  - Heart rate increased [Recovered/Resolved]
